FAERS Safety Report 8933639 (Version 1)
Quarter: 2012Q4

REPORT INFORMATION
  Report Type: 
  Country: US (occurrence: US)
  Receive Date: 20121128
  Receipt Date: 20121128
  Transmission Date: 20130627
  Serious: Yes (Other)
  Sender: FDA-Public Use
  Company Number: US-BAYER-2012-124041

PATIENT
  Age: 60 Year
  Sex: Female

DRUGS (6)
  1. ALEVE CAPLET/TABLET,MIDOL EXTENDED RELIEF CAPLET [Suspect]
     Indication: BACK ACHE
     Dosage: 2 DF, UNK
     Route: 048
     Dates: start: 20121120
  2. ALEVE CAPLET/TABLET,MIDOL EXTENDED RELIEF CAPLET [Suspect]
     Indication: HEADACHE
     Dosage: UNK UNK, IRR
     Route: 048
  3. CAFFEINE [Concomitant]
  4. BAYER ASPIRIN [Concomitant]
  5. HYDROCODONE [Concomitant]
     Indication: PAIN
  6. ANESTHETICS NOS [Concomitant]

REACTIONS (5)
  - Cardiac flutter [Not Recovered/Not Resolved]
  - Palpitations [Not Recovered/Not Resolved]
  - Feeling abnormal [Not Recovered/Not Resolved]
  - Pain [Not Recovered/Not Resolved]
  - Chest pain [None]
